FAERS Safety Report 21210046 (Version 1)
Quarter: 2022Q3

REPORT INFORMATION
  Report Type: Spontaneous
  Country: US (occurrence: US)
  Receive Date: 20220814
  Receipt Date: 20220814
  Transmission Date: 20221027
  Serious: Yes (Other)
  Sender: FDA-Public Use
  Company Number: US-drreddys-SPO/USA/22/0153317

PATIENT
  Age: 26 Year
  Sex: Female

DRUGS (2)
  1. LORAZEPAM [Suspect]
     Active Substance: LORAZEPAM
     Indication: Catatonia
  2. LORAZEPAM [Suspect]
     Active Substance: LORAZEPAM
     Dosage: INCREASED DOSE

REACTIONS (1)
  - Respiratory depression [Unknown]
